FAERS Safety Report 8857707 (Version 2)
Quarter: 2013Q1

REPORT INFORMATION
  Report Type: Spontaneous
  Country: US (occurrence: US)
  Receive Date: 20121024
  Receipt Date: 20130204
  Transmission Date: 20140127
  Serious: No
  Sender: FDA-Public Use
  Company Number: US-009507513-1210USA009849

PATIENT
  Age: 31 Year
  Sex: Female
  Weight: 86.17 kg

DRUGS (1)
  1. IMPLANON [Suspect]
     Indication: CONTRACEPTION
     Dosage: UNK
     Dates: start: 20100804

REACTIONS (4)
  - Medical device complication [Unknown]
  - Medical device complication [Unknown]
  - Device dislocation [Unknown]
  - No adverse event [Unknown]
